FAERS Safety Report 5892147-8 (Version None)
Quarter: 2008Q3

REPORT INFORMATION
  Report Type: 
  Country: None (occurrence: None)
  Receive Date: 20080918
  Receipt Date: 20080910
  Transmission Date: 20090109
  Serious: Yes (Other)
  Sender: FDA-Public Use
  Company Number: 20176

PATIENT
  Age: 16 Year
  Sex: Female

DRUGS (3)
  1. VINCRISTINE [Suspect]
     Indication: EWING'S SARCOMA
  2. CISPLATIN [Suspect]
     Indication: EWING'S SARCOMA
  3. IFOSFAMIDE [Suspect]
     Indication: EWING'S SARCOMA

REACTIONS (5)
  - DIPLOPIA [None]
  - HAEMATOCRIT DECREASED [None]
  - HAEMOGLOBIN DECREASED [None]
  - INTRACRANIAL VENOUS SINUS THROMBOSIS [None]
  - PLATELET COUNT INCREASED [None]
